FAERS Safety Report 22314979 (Version 5)
Quarter: 2025Q2

REPORT INFORMATION
  Report Type: Spontaneous
  Country: RO (occurrence: RO)
  Receive Date: 20230512
  Receipt Date: 20250602
  Transmission Date: 20250717
  Serious: Yes (Other)
  Sender: TAKEDA
  Company Number: RO-TAKEDA-2023TUS040259

PATIENT
  Age: 23 Year
  Sex: Female
  Weight: 60 kg

DRUGS (11)
  1. HUMAN IMMUNOGLOBULIN G [Suspect]
     Active Substance: HUMAN IMMUNOGLOBULIN G
     Indication: Dermatitis atopic
  2. PRIVIGEN [Suspect]
     Active Substance: HUMAN IMMUNOGLOBULIN G
     Indication: Dermatitis atopic
     Dates: start: 20210504, end: 20210504
  3. PRIVIGEN [Suspect]
     Active Substance: HUMAN IMMUNOGLOBULIN G
     Indication: Urticaria
  4. PRIVIGEN [Suspect]
     Active Substance: HUMAN IMMUNOGLOBULIN G
  5. PRIVIGEN [Suspect]
     Active Substance: HUMAN IMMUNOGLOBULIN G
  6. DUPILUMAB [Concomitant]
     Active Substance: DUPILUMAB
  7. BENRALIZUMAB [Concomitant]
     Active Substance: BENRALIZUMAB
  8. OMALIZUMAB [Concomitant]
     Active Substance: OMALIZUMAB
  9. HYDROCORTISONE HEMISUCCINATE [Concomitant]
     Active Substance: HYDROCORTISONE HEMISUCCINATE
     Indication: Premedication
  10. Desloratadinum [Concomitant]
     Indication: Premedication
  11. TACROLIMUS [Concomitant]
     Active Substance: TACROLIMUS
     Indication: Dermatitis atopic
     Dosage: UNK UNK, QD
     Route: 061

REACTIONS (12)
  - Serum sickness [Recovered/Resolved]
  - Off label use [Recovered/Resolved]
  - Lymphadenopathy [Recovered/Resolved]
  - Asthenia [Recovered/Resolved]
  - Oedema [Unknown]
  - Erythema [Recovered/Resolved]
  - Aspartate aminotransferase increased [Recovered/Resolved]
  - Eosinophil count increased [Unknown]
  - Red blood cell sedimentation rate increased [Recovered/Resolved]
  - Face oedema [Recovered/Resolved]
  - Hypersensitivity [Unknown]
  - Conjunctivitis [Unknown]

NARRATIVE: CASE EVENT DATE: 20210506
